FAERS Safety Report 11338154 (Version 1)
Quarter: 2015Q3

REPORT INFORMATION
  Report Type: Spontaneous
  Country: US (occurrence: US)
  Receive Date: 20150803
  Receipt Date: 20150803
  Transmission Date: 20151125
  Serious: Yes (Other)
  Sender: FDA-Public Use
  Company Number: US-ELI_LILLY_AND_COMPANY-US201007002285

PATIENT
  Age: 96 Year
  Sex: Female

DRUGS (1)
  1. ZYPREXA [Suspect]
     Active Substance: OLANZAPINE
     Indication: PARANOIA
     Dosage: 2.5 MG, EACH EVENING
     Dates: end: 20100709

REACTIONS (5)
  - Dysarthria [Unknown]
  - Off label use [Recovered/Resolved]
  - Confusional state [Unknown]
  - Incoherent [Unknown]
  - Transient ischaemic attack [Unknown]
